FAERS Safety Report 13449541 (Version 2)
Quarter: 2017Q3

REPORT INFORMATION
  Report Type: Spontaneous
  Country: FR (occurrence: FR)
  Receive Date: 20170417
  Receipt Date: 20170802
  Transmission Date: 20171127
  Serious: Yes (Hospitalization)
  Sender: FDA-Public Use
  Company Number: FR-PFIZER INC-2017165487

PATIENT
  Age: 35 Year
  Sex: Female

DRUGS (2)
  1. MIFEGYNE [Suspect]
     Active Substance: MIFEPRISTONE
     Indication: ABORTION INDUCED
     Dosage: 600 MG, 1X/DAY
     Route: 048
     Dates: start: 19930811, end: 19930811
  2. CYTOTEC [Suspect]
     Active Substance: MISOPROSTOL
     Indication: ABORTION INDUCED
     Dosage: 600 UG, 1X/DAY (400 MCG AT 08:00 AM AND 200 MCG AT 12:00 AM )
     Route: 065
     Dates: start: 19930813, end: 19930813

REACTIONS (4)
  - Peritoneal haemorrhage [Recovered/Resolved with Sequelae]
  - Metrorrhagia [Recovered/Resolved]
  - Product use in unapproved indication [Unknown]
  - Contraindication to medical treatment [Unknown]

NARRATIVE: CASE EVENT DATE: 19930811
